FAERS Safety Report 4648529-5 (Version None)
Quarter: 2005Q2

REPORT INFORMATION
  Report Type: 
  Country: None (occurrence: None)
  Receive Date: 20050427
  Receipt Date: 20050411
  Transmission Date: 20051028
  Serious: Yes (Hospitalization)
  Sender: FDA-Public Use
  Company Number: 8007480

PATIENT
  Age: 41 Year
  Sex: Female
  Weight: 72 kg

DRUGS (11)
  1. KEPPRA [Suspect]
     Indication: EPILEPSY
     Dosage: 1000 MG /D PO
     Route: 048
     Dates: start: 20040325, end: 20040420
  2. KEPPRA [Suspect]
     Indication: EPILEPSY
     Dosage: 2000 MG /D PO
     Route: 048
     Dates: start: 20040421
  3. KEPPRA [Suspect]
     Indication: EPILEPSY
     Dosage: 4500 MG /D PO
     Route: 048
     Dates: end: 20040924
  4. KEPPRA [Suspect]
     Indication: EPILEPSY
     Dosage: 75000 MG ONCE PO
     Route: 048
     Dates: start: 20040925, end: 20040925
  5. KEPPRA [Suspect]
     Indication: EPILEPSY
     Dosage: PO
     Route: 048
  6. MIRTAZAPINE [Suspect]
     Indication: SLEEP DISORDER
     Dosage: 15 MG /D PO
     Route: 048
     Dates: start: 20040101
  7. MIRTAZAPINE [Suspect]
     Indication: SLEEP DISORDER
     Dosage: PO
     Route: 048
     Dates: start: 20040925, end: 20040925
  8. LORAZEPAM [Suspect]
     Indication: CONVULSION
     Dosage: 1.5 MG PO
     Route: 048
     Dates: start: 20040101
  9. LORAZEPAM [Suspect]
     Indication: CONVULSION
     Dosage: PO
     Route: 048
     Dates: start: 20040925, end: 20040925
  10. OXCARBAZEPINE [Concomitant]
  11. AMITRIPTYLINE HCL [Concomitant]

REACTIONS (8)
  - CONVULSION [None]
  - DISSOCIATION [None]
  - DRUG INEFFECTIVE [None]
  - INTENTIONAL MISUSE [None]
  - LOSS OF CONSCIOUSNESS [None]
  - OVERDOSE [None]
  - PSYCHOTIC DISORDER [None]
  - SUICIDE ATTEMPT [None]
